FAERS Safety Report 6696175-4 (Version None)
Quarter: 2010Q2

REPORT INFORMATION
  Report Type: 
  Country: None (occurrence: None)
  Receive Date: 20100426
  Receipt Date: 20100416
  Transmission Date: 20101027
  Serious: Yes (Death, Hospitalization, Other)
  Sender: FDA-Public Use
  Company Number: CH-BAYER-201022728GPV

PATIENT
  Age: 56 Year
  Sex: Female

DRUGS (3)
  1. FLUDARABINE [Suspect]
     Indication: NON-HODGKIN'S LYMPHOMA
     Dosage: SIX CYCLES FC
     Route: 065
     Dates: start: 20070101
  2. CYCLOPHOSPHAMIDE [Suspect]
     Indication: NON-HODGKIN'S LYMPHOMA
     Dosage: SIX CYCLES FC
     Route: 065
     Dates: start: 20070101
  3. COTRIM [Concomitant]
     Indication: ANTIFUNGAL PROPHYLAXIS
     Dates: start: 20070101

REACTIONS (13)
  - HYPOTENSION [None]
  - LYMPHOPENIA [None]
  - MULTI-ORGAN FAILURE [None]
  - NORMOCHROMIC NORMOCYTIC ANAEMIA [None]
  - PAIN IN EXTREMITY [None]
  - PARAESTHESIA [None]
  - PNEUMONIA [None]
  - PYREXIA [None]
  - RENAL IMPAIRMENT [None]
  - RESPIRATORY FAILURE [None]
  - SEPTIC SHOCK [None]
  - TACHYCARDIA [None]
  - TOXOPLASMOSIS [None]
